FAERS Safety Report 9918659 (Version 2)
Quarter: 2014Q1

REPORT INFORMATION
  Report Type: Spontaneous
  Country: DE (occurrence: DE)
  Receive Date: 20140224
  Receipt Date: 20140224
  Transmission Date: 20141002
  Serious: Yes (Other)
  Sender: FDA-Public Use
  Company Number: DE-MERCK-1305DEU011068

PATIENT
  Age: 32 Year
  Sex: Female

DRUGS (4)
  1. ISENTRESS [Suspect]
     Indication: HIV INFECTION
     Dosage: UNK, BID
     Route: 048
     Dates: start: 201203, end: 201305
  2. TRUVADA [Concomitant]
     Indication: HIV INFECTION
     Dosage: 1 DF, QD
     Route: 048
     Dates: start: 200802
  3. REYATAZ [Concomitant]
     Indication: HIV INFECTION
     Dosage: 300 UNK, UNK
     Dates: start: 201305
  4. NORVIR [Concomitant]
     Indication: HIV INFECTION
     Dosage: 100 UNK, UNK
     Dates: start: 201305

REACTIONS (2)
  - Caesarean section [Recovered/Resolved]
  - Exposure during pregnancy [Recovered/Resolved]
